FAERS Safety Report 11549828 (Version 2)
Quarter: 2016Q1

REPORT INFORMATION
  Report Type: Spontaneous
  Country: US (occurrence: US)
  Receive Date: 20150924
  Receipt Date: 20160120
  Transmission Date: 20160525
  Serious: Yes (Life-Threatening, Other)
  Sender: FDA-Public Use
  Company Number: US-INCYTE CORPORATION-2015IN003688

PATIENT
  Age: 84 Year
  Sex: Female

DRUGS (5)
  1. JAKAFI [Suspect]
     Active Substance: RUXOLITINIB
     Indication: MYELOFIBROSIS
     Dosage: 20 MG, BID
     Route: 048
     Dates: start: 201506, end: 2015
  2. METOPROLOL TARTRATE. [Concomitant]
     Active Substance: METOPROLOL TARTRATE
  3. LOSARTAN. [Concomitant]
     Active Substance: LOSARTAN
  4. FUROSEMIDE. [Concomitant]
     Active Substance: FUROSEMIDE
  5. VITAMINS NOS [Concomitant]
     Active Substance: VITAMINS

REACTIONS (7)
  - Haemoglobin decreased [Unknown]
  - Platelet count decreased [Unknown]
  - Dyspnoea [Unknown]
  - Stress [Unknown]
  - Red blood cell count decreased [Unknown]
  - Fatigue [Unknown]
  - Dizziness [Unknown]

NARRATIVE: CASE EVENT DATE: 201507
